FAERS Safety Report 18171138 (Version 1)
Quarter: 2020Q3

REPORT INFORMATION
  Report Type: Spontaneous
  Country: US (occurrence: US)
  Receive Date: 20200819
  Receipt Date: 20200819
  Transmission Date: 20201103
  Serious: No
  Sender: FDA-Public Use
  Company Number: US-OREXO US, INC.-ORE202001-000006

PATIENT
  Sex: Male

DRUGS (13)
  1. INSULIN [Concomitant]
     Active Substance: INSULIN NOS
     Dosage: 34 UNITS OF 70/30 AND A SLIDING SCALE
  2. METOPROLOL. [Concomitant]
     Active Substance: METOPROLOL
     Dosage: 100 MG TWICE A DAY
  3. ALLOPURINOL. [Concomitant]
     Active Substance: ALLOPURINOL
     Dosage: 300 ONCE A DAY
  4. LASIX [Concomitant]
     Active Substance: FUROSEMIDE
     Dosage: 40 MG ONCE A DAY
  5. SYNTHROID [Concomitant]
     Active Substance: LEVOTHYROXINE SODIUM
     Dosage: 750 MCG ONCE A DAY
  6. B COMPLEX MULTIVITAMIN [Concomitant]
  7. K DUR [Concomitant]
     Dosage: 40 MILLIEQUIVALENT (MEQ) ONCE A DAY
  8. SEROQUEL [Concomitant]
     Active Substance: QUETIAPINE FUMARATE
     Dosage: 150 MG EVERY NIGHT AT BEDTIME
  9. ZUBSOLV [Suspect]
     Active Substance: BUPRENORPHINE HYDROCHLORIDE\NALOXONE HYDROCHLORIDE
     Dosage: 1.45 MG (HALF OF 2.9 MG) IN EVERY 6 HOURS
     Dates: start: 20200113, end: 20200124
  10. LYRICA [Concomitant]
     Active Substance: PREGABALIN
     Dosage: 150 MG TWICE A DAY
  11. LOSARTAN. [Concomitant]
     Active Substance: LOSARTAN
     Dosage: 100 ONCE A DAY
  12. NIFEDIPINE. [Concomitant]
     Active Substance: NIFEDIPINE
     Dosage: 30 MG TWICE A DAY
  13. WELLBUTRIN XL [Concomitant]
     Active Substance: BUPROPION HYDROCHLORIDE
     Dosage: ONCE A DAY

REACTIONS (1)
  - Hypoglycaemia [Recovered/Resolved]
